FAERS Safety Report 25571837 (Version 1)
Quarter: 2025Q3

REPORT INFORMATION
  Report Type: Spontaneous
  Country: CA (occurrence: CA)
  Receive Date: 20250717
  Receipt Date: 20250717
  Transmission Date: 20251020
  Serious: Yes (Other)
  Sender: NOVARTIS
  Company Number: CA-002147023-NVSC2025CA112506

PATIENT
  Sex: Female

DRUGS (30)
  1. LETROZOLE [Suspect]
     Active Substance: LETROZOLE
     Indication: Human epidermal growth factor receptor negative
     Route: 065
  2. LETROZOLE [Suspect]
     Active Substance: LETROZOLE
     Indication: Hormone receptor positive breast cancer
     Route: 065
  3. LETROZOLE [Suspect]
     Active Substance: LETROZOLE
     Indication: Breast cancer metastatic
     Route: 065
  4. FLUOROURACIL [Suspect]
     Active Substance: FLUOROURACIL
     Indication: Human epidermal growth factor receptor negative
     Route: 065
  5. FLUOROURACIL [Suspect]
     Active Substance: FLUOROURACIL
     Indication: Hormone receptor positive breast cancer
     Route: 065
  6. FLUOROURACIL [Suspect]
     Active Substance: FLUOROURACIL
     Indication: Breast cancer metastatic
     Route: 065
  7. FULVESTRANT [Suspect]
     Active Substance: FULVESTRANT
     Indication: Human epidermal growth factor receptor negative
     Route: 030
  8. FULVESTRANT [Suspect]
     Active Substance: FULVESTRANT
     Indication: Hormone receptor positive breast cancer
     Route: 065
  9. FULVESTRANT [Suspect]
     Active Substance: FULVESTRANT
     Indication: Breast cancer metastatic
     Route: 065
  10. PACLITAXEL [Suspect]
     Active Substance: PACLITAXEL
     Indication: Human epidermal growth factor receptor negative
     Route: 042
  11. PACLITAXEL [Suspect]
     Active Substance: PACLITAXEL
     Indication: Hormone receptor positive breast cancer
  12. PACLITAXEL [Suspect]
     Active Substance: PACLITAXEL
     Indication: Breast cancer metastatic
  13. EXEMESTANE [Suspect]
     Active Substance: EXEMESTANE
     Indication: Human epidermal growth factor receptor negative
     Route: 065
  14. EXEMESTANE [Suspect]
     Active Substance: EXEMESTANE
     Indication: Hormone receptor positive breast cancer
     Route: 065
  15. EXEMESTANE [Suspect]
     Active Substance: EXEMESTANE
     Indication: Breast cancer metastatic
     Route: 065
  16. EPIRUBICIN [Suspect]
     Active Substance: EPIRUBICIN
     Indication: Human epidermal growth factor receptor negative
     Route: 065
  17. EPIRUBICIN [Suspect]
     Active Substance: EPIRUBICIN
     Indication: Hormone receptor positive breast cancer
     Route: 065
  18. EPIRUBICIN [Suspect]
     Active Substance: EPIRUBICIN
     Indication: Breast cancer metastatic
     Route: 042
  19. CYCLOPHOSPHAMIDE [Suspect]
     Active Substance: CYCLOPHOSPHAMIDE
     Indication: Human epidermal growth factor receptor negative
     Route: 042
  20. CYCLOPHOSPHAMIDE [Suspect]
     Active Substance: CYCLOPHOSPHAMIDE
     Indication: Hormone receptor positive breast cancer
  21. CYCLOPHOSPHAMIDE [Suspect]
     Active Substance: CYCLOPHOSPHAMIDE
     Indication: Breast cancer metastatic
  22. TAMOXIFEN CITRATE [Suspect]
     Active Substance: TAMOXIFEN CITRATE
     Indication: Human epidermal growth factor receptor negative
     Route: 048
  23. TAMOXIFEN CITRATE [Suspect]
     Active Substance: TAMOXIFEN CITRATE
     Indication: Hormone receptor positive breast cancer
     Route: 048
  24. TAMOXIFEN CITRATE [Suspect]
     Active Substance: TAMOXIFEN CITRATE
     Indication: Breast cancer metastatic
     Route: 065
  25. TAXOL [Suspect]
     Active Substance: PACLITAXEL
     Indication: Human epidermal growth factor receptor negative
     Route: 030
  26. TAXOL [Suspect]
     Active Substance: PACLITAXEL
     Indication: Hormone receptor positive breast cancer
  27. TAXOL [Suspect]
     Active Substance: PACLITAXEL
     Indication: Breast cancer metastatic
  28. XELODA [Suspect]
     Active Substance: CAPECITABINE
     Indication: Human epidermal growth factor receptor negative
     Route: 065
  29. XELODA [Suspect]
     Active Substance: CAPECITABINE
     Indication: Hormone receptor positive breast cancer
     Route: 048
  30. XELODA [Suspect]
     Active Substance: CAPECITABINE
     Indication: Breast cancer metastatic
     Route: 065

REACTIONS (1)
  - Metastasis [Unknown]
